FAERS Safety Report 5224704-6 (Version None)
Quarter: 2007Q1

REPORT INFORMATION
  Report Type: 
  Country: None (occurrence: None)
  Receive Date: 20070131
  Receipt Date: 20070119
  Transmission Date: 20070707
  Serious: Yes (Hospitalization)
  Sender: FDA-Public Use
  Company Number: FR-JNJFOC-20070105447

PATIENT
  Age: 64 Year
  Sex: Male

DRUGS (3)
  1. REMICADE [Suspect]
     Route: 042
  2. REMICADE [Suspect]
     Route: 042
  3. REMICADE [Suspect]
     Indication: ANKYLOSING SPONDYLITIS
     Route: 042

REACTIONS (6)
  - ANTINUCLEAR ANTIBODY POSITIVE [None]
  - COAGULATION TIME PROLONGED [None]
  - HERPES ZOSTER [None]
  - MENINGITIS VIRAL [None]
  - PNEUMONIA PNEUMOCOCCAL [None]
  - SYSTEMIC LUPUS ERYTHEMATOSUS [None]
